FAERS Safety Report 10757532 (Version 2)
Quarter: 2015Q1

REPORT INFORMATION
  Report Type: Spontaneous
  Country: US (occurrence: US)
  Receive Date: 20150203
  Receipt Date: 20150330
  Transmission Date: 20150721
  Serious: Yes (Life-Threatening, Hospitalization)
  Sender: FDA-Public Use
  Company Number: US-BAYER-2015-013976

PATIENT
  Age: 24 Year
  Sex: Female
  Weight: 56.69 kg

DRUGS (1)
  1. MIRENA [Suspect]
     Active Substance: LEVONORGESTREL
     Indication: CONTRACEPTION
     Dosage: 20 MCG/24HR, CONT
     Route: 015
     Dates: start: 20100915, end: 20121030

REACTIONS (7)
  - Syncope [None]
  - Infection [None]
  - General physical health deterioration [None]
  - Uterine perforation [None]
  - Injury [None]
  - Abdominal pain [None]
  - Abdominal pain lower [None]

NARRATIVE: CASE EVENT DATE: 20121028
